FAERS Safety Report 8225813-X (Version None)
Quarter: 2012Q1

REPORT INFORMATION
  Report Type: 
  Country: None (occurrence: None)
  Receive Date: 20120321
  Receipt Date: 20120312
  Transmission Date: 20120608
  Serious: No
  Sender: FDA-Public Use
  Company Number: US-CELGENEUS-163-21880-12022012

PATIENT
  Sex: Female
  Weight: 103.97 kg

DRUGS (2)
  1. ZOMETA [Concomitant]
     Dosage: 4 MILLIGRAM
     Route: 041
     Dates: start: 20100115, end: 20120111
  2. REVLIMID [Suspect]
     Indication: MULTIPLE MYELOMA
     Dosage: 10 MILLIGRAM
     Route: 048
     Dates: start: 20100222

REACTIONS (1)
  - TOOTH EXTRACTION [None]
